FAERS Safety Report 10736365 (Version 1)
Quarter: 2015Q1

REPORT INFORMATION
  Report Type: Spontaneous
  Country: JP (occurrence: None)
  Receive Date: 20150122
  Receipt Date: 20150122
  Transmission Date: 20150721
  Serious: Yes (Other)
  Sender: FDA-Public Use
  Company Number: 2014-20979

PATIENT
  Age: 84 Year
  Sex: Male
  Weight: 50 kg

DRUGS (1)
  1. EYLEA [Suspect]
     Active Substance: AFLIBERCEPT
     Indication: AGE-RELATED MACULAR DEGENERATION
     Route: 031
     Dates: start: 20130926, end: 20130926

REACTIONS (3)
  - Choroidal neovascularisation [None]
  - Retinal pigment epithelial tear [None]
  - Visual acuity reduced [None]

NARRATIVE: CASE EVENT DATE: 201310
